FAERS Safety Report 9600405 (Version 1)
Quarter: 2013Q4

REPORT INFORMATION
  Report Type: Spontaneous
  Country: US (occurrence: US)
  Receive Date: 20131004
  Receipt Date: 20131004
  Transmission Date: 20140711
  Serious: No
  Sender: FDA-Public Use
  Company Number: US-AMGEN-USASP2013034550

PATIENT
  Age: 47 Year
  Sex: Female
  Weight: 86.62 kg

DRUGS (5)
  1. ENBREL [Suspect]
     Indication: PRODUCT USED FOR UNKNOWN INDICATION
     Dosage: 50 MG, QWK
     Route: 058
     Dates: start: 2008
  2. LISINOPRIL [Concomitant]
     Dosage: 20 MG, UNK
  3. ESTROPIPATE [Concomitant]
     Dosage: 1.5 MG, UNK
  4. BUPROPION HCL [Concomitant]
     Dosage: TABLET 300 MG XL, UNK
  5. PERFORMA [Concomitant]
     Dosage: UNK

REACTIONS (3)
  - Injection site pain [Unknown]
  - Injection site erythema [Unknown]
  - Injection site pruritus [Unknown]
